FAERS Safety Report 5464657-9 (Version None)
Quarter: 2007Q3

REPORT INFORMATION
  Report Type: 
  Country: None (occurrence: None)
  Receive Date: 20070921
  Receipt Date: 20070914
  Transmission Date: 20080115
  Serious: Yes (Hospitalization)
  Sender: FDA-Public Use
  Company Number: US-MERCK-0709USA02350

PATIENT
  Age: 56 Year
  Sex: Female

DRUGS (6)
  1. MAXALT-MLT [Suspect]
     Indication: MIGRAINE
     Route: 048
     Dates: start: 20070101
  2. MAXALT-MLT [Suspect]
     Route: 048
     Dates: start: 20070904
  3. MAXALT-MLT [Suspect]
     Route: 048
     Dates: start: 20070908
  4. ALLEGRA [Concomitant]
     Route: 065
  5. MOBIC [Concomitant]
     Route: 065
  6. HORMONES (UNSPECIFIED) [Concomitant]
     Route: 065

REACTIONS (3)
  - DRUG INEFFECTIVE [None]
  - MYOCARDIAL INFARCTION [None]
  - OVERDOSE [None]
